FAERS Safety Report 6403982-1 (Version None)
Quarter: 2009Q4

REPORT INFORMATION
  Report Type: 
  Country: None (occurrence: None)
  Receive Date: 20091016
  Receipt Date: 20090713
  Transmission Date: 20100525
  Serious: No
  Sender: FDA-Public Use
  Company Number: US-ALEXION-A200900567

PATIENT
  Sex: Female

DRUGS (11)
  1. SOLIRIS [Suspect]
     Indication: PAROXYSMAL NOCTURNAL HAEMOGLOBINURIA
     Dosage: 600 MG, QW
     Route: 042
     Dates: start: 20080312
  2. SOLIRIS [Suspect]
     Dosage: 900 MG, Q2W
     Route: 042
     Dates: start: 20080409
  3. ASPIRIN [Suspect]
     Dosage: 81 MG, QD
     Route: 048
  4. PLAVIX [Concomitant]
     Dosage: 75 MG, QD
     Route: 048
  5. K-DUR [Concomitant]
     Dosage: 10 MEQ, BID
     Route: 048
  6. MAGNESIUM [Concomitant]
     Dosage: 100 MG, QD
     Route: 048
  7. EXJADE [Concomitant]
     Dosage: 500 MG, BID
     Route: 048
  8. DIGOXIN [Concomitant]
     Dosage: 250 UG, QD
     Route: 048
  9. VITAMIN A [Concomitant]
     Dosage: 400 UT, QD
     Route: 048
  10. ATENOLOL [Concomitant]
     Dosage: 50 MG, QD
     Route: 048
  11. LOMOTIL                            /00034001/ [Concomitant]
     Dosage: UNK
     Route: 048

REACTIONS (7)
  - BLEEDING TIME PROLONGED [None]
  - BLOOD IRON INCREASED [None]
  - CONTUSION [None]
  - EPISTAXIS [None]
  - HAEMORRHAGE [None]
  - PLATELET COUNT DECREASED [None]
  - SERUM FERRITIN INCREASED [None]
